FAERS Safety Report 22631411 (Version 1)
Quarter: 2023Q2

REPORT INFORMATION
  Report Type: Spontaneous
  Country: CN (occurrence: CN)
  Receive Date: 20230623
  Receipt Date: 20230623
  Transmission Date: 20230722
  Serious: Yes (Other)
  Sender: FDA-Public Use
  Company Number: CN-002147023-NVSC2023CN138169

PATIENT
  Age: 53 Year
  Sex: Female
  Weight: 61.5 kg

DRUGS (3)
  1. VORICONAZOLE [Suspect]
     Active Substance: VORICONAZOLE
     Indication: Pneumonia
     Dosage: 200 MG, QD (ONCE EVERY TWO DAYS)
     Route: 048
     Dates: start: 20230420, end: 20230424
  2. VORICONAZOLE [Suspect]
     Active Substance: VORICONAZOLE
     Indication: Pneumonia
     Dosage: 0.1 G, QD (ONCE EVERY TWO DAYS)
     Route: 041
     Dates: start: 20230416, end: 20230420
  3. MANNITOL [Concomitant]
     Active Substance: MANNITOL
     Indication: Dehydration
     Dosage: UNK
     Route: 065

REACTIONS (6)
  - Depressed level of consciousness [Unknown]
  - Intracranial infection [Unknown]
  - Nervous system disorder [Unknown]
  - Encephalopathy [Unknown]
  - Mental disorder [Unknown]
  - Hypophosphataemia [Unknown]

NARRATIVE: CASE EVENT DATE: 20230424
